FAERS Safety Report 7959385-1 (Version None)
Quarter: 2011Q4

REPORT INFORMATION
  Report Type: 
  Country: None (occurrence: None)
  Receive Date: 20111206
  Receipt Date: 20111130
  Transmission Date: 20120403
  Serious: Yes (Hospitalization, Other)
  Sender: FDA-Public Use
  Company Number: DE-PFIZER INC-2011286162

PATIENT
  Sex: Male
  Weight: 70 kg

DRUGS (1)
  1. ECALTA [Suspect]
     Indication: PNEUMONIA FUNGAL
     Dosage: UNK
     Route: 042
     Dates: start: 20110901, end: 20111119

REACTIONS (1)
  - EPIDERMOLYSIS [None]
